FAERS Safety Report 22351621 (Version 2)
Quarter: 2023Q2

REPORT INFORMATION
  Report Type: Spontaneous
  Country: CN (occurrence: CN)
  Receive Date: 20230522
  Receipt Date: 20230627
  Transmission Date: 20230721
  Serious: Yes (Other)
  Sender: FDA-Public Use
  Company Number: CN-002147023-NVSC2023CN116355

PATIENT
  Age: 24 Year
  Sex: Female
  Weight: 65 kg

DRUGS (3)
  1. OXCARBAZEPINE [Suspect]
     Active Substance: OXCARBAZEPINE
     Indication: Epilepsy
     Dosage: 0.45 G, BID
     Route: 065
  2. LEVETIRACETAM [Suspect]
     Active Substance: LEVETIRACETAM
     Indication: Epilepsy
     Dosage: 1 G, BID REGULARLY
     Route: 048
  3. TOPIRAMATE [Concomitant]
     Active Substance: TOPIRAMATE
     Indication: Epilepsy
     Dosage: 100 G, BID
     Route: 065

REACTIONS (3)
  - Cytotoxic lesions of corpus callosum [Recovered/Resolved]
  - Drug withdrawal syndrome [Unknown]
  - Drug ineffective [Unknown]
